FAERS Safety Report 23737485 (Version 2)
Quarter: 2024Q2

REPORT INFORMATION
  Report Type: Spontaneous
  Country: CA (occurrence: CA)
  Receive Date: 20240412
  Receipt Date: 20240524
  Transmission Date: 20240716
  Serious: Yes (Life-Threatening, Other)
  Sender: FDA-Public Use
  Company Number: CA-SANDOZ-SDZ2024CA038577

PATIENT
  Age: 46 Year
  Sex: Female

DRUGS (7)
  1. SOMATROPIN [Suspect]
     Active Substance: SOMATROPIN
     Indication: Growth hormone deficiency
     Dosage: 0.3 MG, QD,SOLUTION FOR INJECTION IN PRE-FILLED PEN
     Route: 058
  2. SOMATROPIN [Suspect]
     Active Substance: SOMATROPIN
     Indication: Growth hormone deficiency
     Dosage: 200 UG, QD
     Route: 058
  3. PRASTERONE SULFATE [Concomitant]
     Active Substance: PRASTERONE SULFATE
     Indication: Product used for unknown indication
     Route: 065
  4. PRASTERONE SULFATE [Concomitant]
     Active Substance: PRASTERONE SULFATE
     Indication: Product used for unknown indication
     Route: 065
  5. PROGESTERONE [Concomitant]
     Active Substance: PROGESTERONE
     Indication: Product used for unknown indication
     Dosage: 100 MG, QD
     Route: 065
  6. TESTOSTERONE [Concomitant]
     Active Substance: TESTOSTERONE
     Indication: Product used for unknown indication
     Route: 065
  7. TESTOSTERONE [Concomitant]
     Active Substance: TESTOSTERONE
     Indication: Product used for unknown indication
     Route: 065

REACTIONS (1)
  - Breast cancer [Recovered/Resolved with Sequelae]
